FAERS Safety Report 9920586 (Version 1)
Quarter: 2014Q1

REPORT INFORMATION
  Report Type: Spontaneous
  Country: US (occurrence: US)
  Receive Date: 20140224
  Receipt Date: 20140224
  Transmission Date: 20141002
  Serious: No
  Sender: FDA-Public Use
  Company Number: US-NOVEN-13US008480

PATIENT
  Age: 50 Year
  Sex: Female

DRUGS (5)
  1. MINIVELLE [Suspect]
     Indication: HOT FLUSH
     Dosage: 0.05 MG, 2/WK
     Route: 062
     Dates: start: 201311
  2. MINIVELLE [Suspect]
     Indication: NIGHT SWEATS
  3. MINIVELLE [Suspect]
     Indication: MOOD SWINGS
  4. ADVAIR [Concomitant]
     Indication: ASTHMA
     Dosage: UNK
     Route: 050
  5. SINGULAIR [Concomitant]
     Indication: HYPERSENSITIVITY
     Dosage: UNK
     Route: 048

REACTIONS (2)
  - Constipation [Not Recovered/Not Resolved]
  - Abdominal pain [Not Recovered/Not Resolved]
